FAERS Safety Report 8571009-1 (Version None)
Quarter: 2012Q3

REPORT INFORMATION
  Report Type: 
  Country: None (occurrence: None)
  Receive Date: 20120806
  Receipt Date: 20120726
  Transmission Date: 20120928
  Serious: Yes (Hospitalization, Other)
  Sender: FDA-Public Use
  Company Number: US-009507513-1208USA000100

PATIENT

DRUGS (2)
  1. REBETOL [Suspect]
     Indication: HEPATITIS C
     Dosage: UNK
     Route: 048
     Dates: start: 20090101, end: 20090101
  2. REBETOL [Suspect]
     Dosage: UNK
     Route: 048
     Dates: start: 20120411

REACTIONS (5)
  - THROMBOSIS [None]
  - HEPATITIS C [None]
  - THYROIDECTOMY [None]
  - HEPATIC CIRRHOSIS [None]
  - RENAL DISORDER [None]
